FAERS Safety Report 14151860 (Version 1)
Quarter: 2017Q4

REPORT INFORMATION
  Report Type: Spontaneous
  Country: US (occurrence: US)
  Receive Date: 20171101
  Receipt Date: 20171101
  Transmission Date: 20180321
  Serious: Yes (Hospitalization, Other)
  Sender: FDA-Public Use
  Company Number: None

PATIENT
  Age: 63 Year
  Sex: Male
  Weight: 129.6 kg

DRUGS (6)
  1. CARVEIDOL [Concomitant]
  2. ASPIRIN. [Concomitant]
     Active Substance: ASPIRIN
  3. VITAMIN [Concomitant]
     Active Substance: VITAMINS
  4. LIVALO [Concomitant]
     Active Substance: PITAVASTATIN CALCIUM
  5. LISINOPRIL 20 MG TABLET [Suspect]
     Active Substance: LISINOPRIL
     Indication: HYPERTENSION
     Dosage: ?          QUANTITY:30 TABLET(S);?
     Route: 048
     Dates: start: 20170703, end: 20170725
  6. ULORIC [Concomitant]
     Active Substance: FEBUXOSTAT

REACTIONS (10)
  - Confusional state [None]
  - Product size issue [None]
  - Anxiety [None]
  - Heart rate irregular [None]
  - Headache [None]
  - Nausea [None]
  - Product substitution issue [None]
  - Palpitations [None]
  - Fatigue [None]
  - Blood pressure increased [None]

NARRATIVE: CASE EVENT DATE: 20170723
